FAERS Safety Report 7554285-3 (Version None)
Quarter: 2011Q2

REPORT INFORMATION
  Report Type: 
  Country: None (occurrence: None)
  Receive Date: 20110617
  Receipt Date: 20110601
  Transmission Date: 20111010
  Serious: No
  Sender: FDA-Public Use
  Company Number: US-B.I. PHARMACEUTICALS,INC./RIDGEFIELD-2011-BP-06431BP

PATIENT
  Sex: Female

DRUGS (7)
  1. LISINOPRIL AND HYDROCHLOROTHIAZIDE [Concomitant]
  2. ATENOLOL [Concomitant]
     Dosage: 75 MG
  3. ASPIRIN [Concomitant]
     Dosage: 81 MG
  4. PRADAXA [Suspect]
     Indication: ATRIAL FIBRILLATION
     Dosage: 300 MG
     Route: 048
     Dates: start: 20110201
  5. ATACAND [Concomitant]
  6. LISINOPRIL [Concomitant]
     Dosage: 5 MG
  7. HYDROCHLOROTHIAZIDE [Concomitant]
     Dosage: 25 MG

REACTIONS (4)
  - EYE HAEMORRHAGE [None]
  - SCLERAL HAEMORRHAGE [None]
  - DYSPEPSIA [None]
  - OCULAR HYPERAEMIA [None]
